FAERS Safety Report 8276682 (Version 2)
Quarter: 2012Q4

REPORT INFORMATION
  Report Type: 
  Country: JP (occurrence: JP)
  Receive Date: 20111206
  Receipt Date: 20121219
  Transmission Date: 20130627
  Serious: Yes (Hospitalization)
  Sender: FDA-Public Use
  Company Number: JP-GLAXOSMITHKLINE-B0764294A

PATIENT
  Age: 47 Year
  Sex: Female

DRUGS (4)
  1. LAMICTAL [Suspect]
     Indication: BIPOLAR I DISORDER
     Dosage: 25MG Per day
     Route: 048
     Dates: start: 20111019, end: 20111103
  2. LIMAS [Concomitant]
     Dosage: 800MG Per day
     Route: 048
  3. SEROQUEL [Concomitant]
     Dosage: 300MG Per day
     Route: 048
  4. MAGMITT [Concomitant]
     Dosage: 330MG Three times per day
     Route: 048

REACTIONS (19)
  - Stevens-Johnson syndrome [Recovered/Resolved]
  - Erythema multiforme [Unknown]
  - Pyrexia [Recovered/Resolved]
  - Rash [Recovered/Resolved]
  - Rash [Recovered/Resolved]
  - Drug eruption [Recovered/Resolved]
  - Lip erosion [Recovered/Resolved]
  - Stomatitis [Recovered/Resolved]
  - Erythema multiforme [Recovered/Resolved]
  - Blister [Recovered/Resolved]
  - Enanthema [Recovered/Resolved]
  - Scab [Recovered/Resolved]
  - Skin erosion [Recovered/Resolved]
  - Alanine aminotransferase increased [Unknown]
  - Blood creatine phosphokinase decreased [Unknown]
  - C-reactive protein increased [Unknown]
  - White blood cell count increased [Unknown]
  - Eosinophil count increased [Unknown]
  - Fibrin D dimer increased [Unknown]
